FAERS Safety Report 8784239 (Version 1)
Quarter: 2012Q4

REPORT INFORMATION
  Report Type: 
  Country: DE (occurrence: BR)
  Receive Date: 20120913
  Receipt Date: 20120913
  Transmission Date: 20130627
  Serious: No
  Sender: FDA-Public Use
  Company Number: BR-FRI-1000038515

PATIENT
  Age: 68 Year
  Sex: Female

DRUGS (2)
  1. ROFLUMILAST [Suspect]
     Indication: CHRONIC OBSTRUCTIVE PULMONARY DISEASE
     Dosage: 1 DF
     Route: 048
  2. SPIRIVA [Concomitant]
     Indication: CHRONIC OBSTRUCTIVE PULMONARY DISEASE

REACTIONS (4)
  - Blood pressure increased [Unknown]
  - Tachycardia [Unknown]
  - Tremor [Unknown]
  - Insomnia [Unknown]
